FAERS Safety Report 7846718-X (Version None)
Quarter: 2011Q4

REPORT INFORMATION
  Report Type: 
  Country: None (occurrence: None)
  Receive Date: 20111025
  Receipt Date: 20111020
  Transmission Date: 20120403
  Serious: Yes (Death)
  Sender: FDA-Public Use
  Company Number: PHEH2011US07322

PATIENT
  Sex: Male

DRUGS (3)
  1. EXJADE [Suspect]
     Indication: MYELODYSPLASTIC SYNDROME
     Dosage: 2000 MG, DAILY
     Route: 048
     Dates: start: 20110620
  2. TOPROL-XL [Concomitant]
     Dosage: 200 MG, 24 HR TAB
  3. ZESTRIL [Concomitant]
     Dosage: 30 MG, UNK

REACTIONS (1)
  - DEATH [None]
